FAERS Safety Report 14577608 (Version 2)
Quarter: 2018Q2

REPORT INFORMATION
  Report Type: Other
  Country: PL (occurrence: PL)
  Receive Date: 20180227
  Receipt Date: 20180504
  Transmission Date: 20180711
  Serious: Yes (Hospitalization, Other)
  Sender: FDA-Public Use
  Company Number: PL-GLENMARK PHARMACEUTICALS-2017GMK032685

PATIENT

DRUGS (28)
  1. VINBLASTINE [Suspect]
     Active Substance: VINBLASTINE
     Indication: METASTASES TO LYMPH NODES
     Dosage: 4 COURSES
     Route: 065
     Dates: start: 20121001, end: 20130801
  2. VINBLASTINE [Suspect]
     Active Substance: VINBLASTINE
     Indication: HODGKIN^S DISEASE
     Dosage: UNK
  3. BLEOMYCIN [Suspect]
     Active Substance: BLEOMYCIN SULFATE
     Indication: HODGKIN^S DISEASE
     Dosage: UNK
     Route: 065
  4. BENDAMUSTINE [Suspect]
     Active Substance: BENDAMUSTINE
     Indication: HODGKIN^S DISEASE RECURRENT
     Dosage: UNK
     Route: 065
     Dates: start: 201508, end: 201510
  5. CARBOPLATIN. [Suspect]
     Active Substance: CARBOPLATIN
     Indication: HODGKIN^S DISEASE RECURRENT
     Dosage: 3 COURSES OF ICE REGIMEN
     Route: 065
     Dates: start: 20150101
  6. DOXORUBICIN [Suspect]
     Active Substance: DOXORUBICIN
     Indication: HODGKIN^S DISEASE
     Dosage: UNK
     Route: 065
  7. CEFTAZIDIME. [Concomitant]
     Active Substance: CEFTAZIDIME
     Dosage: 2 G, OD
     Route: 065
     Dates: start: 20170406
  8. BENDAMUSTINE [Suspect]
     Active Substance: BENDAMUSTINE
     Dosage: UNK
     Route: 065
     Dates: start: 201610, end: 20170101
  9. HOLOXAN [Suspect]
     Active Substance: IFOSFAMIDE
     Indication: HODGKIN^S DISEASE RECURRENT
     Dosage: 4 COURSES OF IGEV REGIMEN
     Route: 065
     Dates: start: 20151201
  10. DACARBAZINE. [Suspect]
     Active Substance: DACARBAZINE
     Indication: METASTASES TO LYMPH NODES
     Dosage: 4 COURSES
     Route: 065
     Dates: start: 20121001, end: 20130801
  11. BRENTUXIMAB VEDOTIN [Suspect]
     Active Substance: BRENTUXIMAB VEDOTIN
     Indication: HODGKIN^S DISEASE RECURRENT
     Dosage: 4 COURSES OF BB REGIMEN
     Route: 065
     Dates: start: 20160101, end: 201701
  12. IFOSFAMIDE. [Suspect]
     Active Substance: IFOSFAMIDE
     Indication: HODGKIN^S DISEASE RECURRENT
     Dosage: UNK
     Route: 065
  13. BENDAMUSTINE [Suspect]
     Active Substance: BENDAMUSTINE
     Dosage: UNK
     Route: 042
     Dates: start: 20160101, end: 201701
  14. ETOPOSIDE. [Suspect]
     Active Substance: ETOPOSIDE
     Indication: HODGKIN^S DISEASE
     Dosage: 3 COURSES OF ICE REGIMEN
     Route: 065
     Dates: start: 20150101
  15. DACARBAZINE. [Suspect]
     Active Substance: DACARBAZINE
     Indication: HODGKIN^S DISEASE
     Dosage: UNK
     Route: 065
  16. BLEOMYCIN [Suspect]
     Active Substance: BLEOMYCIN SULFATE
     Indication: METASTASES TO LYMPH NODES
     Dosage: 4 COURSES
     Route: 065
     Dates: start: 20121001, end: 20130801
  17. AMIKACIN. [Concomitant]
     Active Substance: AMIKACIN
     Dosage: 2 G, OD
     Route: 065
     Dates: start: 20170406
  18. GEMCITABINE [Suspect]
     Active Substance: GEMCITABINE\GEMCITABINE HYDROCHLORIDE
     Indication: HODGKIN^S DISEASE RECURRENT
  19. HOLOXAN [Suspect]
     Active Substance: IFOSFAMIDE
     Indication: HODGKIN^S DISEASE
     Dosage: UNK,3 COURSES OF ICE REGIMEN
     Route: 065
     Dates: start: 20150101
  20. ETOPOSIDE. [Suspect]
     Active Substance: ETOPOSIDE
     Indication: HODGKIN^S DISEASE RECURRENT
  21. CARBOPLATIN. [Suspect]
     Active Substance: CARBOPLATIN
     Indication: HODGKIN^S DISEASE
  22. VINORELBINE [Suspect]
     Active Substance: VINORELBINE\VINORELBINE TARTRATE
     Indication: HODGKIN^S DISEASE
     Dosage: 4 COURSES OF IGEV REGIMEN
     Route: 065
     Dates: start: 20151201
  23. AMIKACIN. [Concomitant]
     Active Substance: AMIKACIN
     Indication: PNEUMONIA
     Dosage: 1 X 1 GRAM
     Route: 065
     Dates: start: 20170401
  24. DOXORUBICIN [Suspect]
     Active Substance: DOXORUBICIN
     Indication: METASTASES TO LYMPH NODES
     Dosage: 4 COURSES
     Route: 065
     Dates: start: 20121001, end: 20130801
  25. GEMCITABINE [Suspect]
     Active Substance: GEMCITABINE\GEMCITABINE HYDROCHLORIDE
     Indication: HODGKIN^S DISEASE
     Dosage: 4 COURSES OF IGEV REGIMEN
     Route: 065
     Dates: start: 20151201
  26. CEFTAZIDIME. [Concomitant]
     Active Substance: CEFTAZIDIME
     Indication: PNEUMONIA
     Dosage: 2 X 2 GRAM
     Route: 065
     Dates: start: 20170401
  27. LAKCID                             /00079701/ [Concomitant]
     Indication: PRODUCT USED FOR UNKNOWN INDICATION
     Dosage: 3 X 1
     Route: 065
     Dates: start: 20170401
  28. VINORELBINE [Suspect]
     Active Substance: VINORELBINE\VINORELBINE TARTRATE
     Indication: HODGKIN^S DISEASE RECURRENT

REACTIONS (10)
  - Drug ineffective for unapproved indication [Unknown]
  - Quadriplegia [Recovering/Resolving]
  - Off label use [Unknown]
  - Hypotonia [Unknown]
  - Guillain-Barre syndrome [Recovering/Resolving]
  - Peripheral nerve injury [Unknown]
  - Demyelinating polyneuropathy [Recovering/Resolving]
  - Areflexia [Unknown]
  - Hypoaesthesia [Unknown]
  - Urinary retention [Unknown]

NARRATIVE: CASE EVENT DATE: 20170405
